FAERS Safety Report 15624517 (Version 2)
Quarter: 2019Q3

REPORT INFORMATION
  Report Type: Spontaneous
  Country: CA (occurrence: CA)
  Receive Date: 20181116
  Receipt Date: 20190917
  Transmission Date: 20191004
  Serious: Yes (Other)
  Sender: FDA-Public Use
  Company Number: CA-009507513-1510CAN012384

PATIENT
  Age: 43 Year
  Sex: Female

DRUGS (4)
  1. TEMODAL [Suspect]
     Active Substance: TEMOZOLOMIDE
     Indication: OLIGOASTROCYTOMA
     Dosage: 150 MG, PER ^DIE^ FOR 52 DAYS
     Route: 048
     Dates: start: 20151019
  2. TEMODAL [Suspect]
     Active Substance: TEMOZOLOMIDE
     Indication: ANAPLASTIC ASTROCYTOMA
     Dosage: 420 MG X 5 DAYS
     Route: 048
     Dates: end: 201606
  3. TEMODAL [Suspect]
     Active Substance: TEMOZOLOMIDE
     Dosage: 100 MILLIGRAM, QD (DAILY CONTINUOUS)
     Dates: start: 20151019, end: 20190828
  4. TEMODAL [Suspect]
     Active Substance: TEMOZOLOMIDE
     Dosage: 100 MILLIGRAM, QD
     Route: 048
     Dates: start: 20181109

REACTIONS (3)
  - Brain neoplasm malignant [Unknown]
  - Recurrent cancer [Unknown]
  - Off label use [Unknown]

NARRATIVE: CASE EVENT DATE: 20151019
